FAERS Safety Report 4562389-2 (Version None)
Quarter: 2005Q1

REPORT INFORMATION
  Report Type: 
  Country: None (occurrence: None)
  Receive Date: 20050121
  Receipt Date: 20050107
  Transmission Date: 20050727
  Serious: Yes (Hospitalization, Other)
  Sender: FDA-Public Use
  Company Number: 2005-DE-00076GD

PATIENT
  Age: 39 Year
  Sex: Female

DRUGS (3)
  1. NEVIRAPINE [Suspect]
     Indication: HIV INFECTION
     Dates: start: 19980101
  2. ZIDOVUDINE [Suspect]
     Indication: HIV INFECTION
     Dates: start: 19980101
  3. NELFINAVIR (NELFINAVIR) [Suspect]
     Indication: HIV INFECTION
     Dates: start: 19980101

REACTIONS (21)
  - ABDOMINAL DISCOMFORT [None]
  - BLOOD HIV RNA INCREASED [None]
  - CARDIOGENIC SHOCK [None]
  - CARDIOPULMONARY FAILURE [None]
  - CHILLS [None]
  - DIARRHOEA [None]
  - HAEMODIALYSIS [None]
  - HEPATIC FAILURE [None]
  - HEPATIC INFARCTION [None]
  - LEUKOPENIA [None]
  - LIPOATROPHY [None]
  - LYMPHOCYTE MORPHOLOGY ABNORMAL [None]
  - LYMPHOCYTOSIS [None]
  - MULTI-ORGAN FAILURE [None]
  - MYOCARDITIS [None]
  - NEUTROPHIL PERCENTAGE DECREASED [None]
  - REBOUND EFFECT [None]
  - RENAL FAILURE ACUTE [None]
  - SEPTIC SHOCK [None]
  - SHIFT TO THE LEFT [None]
  - VENTRICULAR TACHYCARDIA [None]
